FAERS Safety Report 4901213-2 (Version None)
Quarter: 2006Q1

REPORT INFORMATION
  Report Type: 
  Country: None (occurrence: None)
  Receive Date: 20060202
  Receipt Date: 20060120
  Transmission Date: 20060701
  Serious: Yes (Other)
  Sender: FDA-Public Use
  Company Number: 2005164114

PATIENT
  Sex: Female
  Weight: 66.2252 kg

DRUGS (21)
  1. CELEBREX [Suspect]
     Indication: OSTEOARTHRITIS
     Dosage: 100 MG (100 MG, 1 IN 1 D), ORAL
     Route: 048
     Dates: start: 20051202
  2. CELEBREX [Suspect]
     Indication: RHEUMATOID ARTHRITIS
     Dosage: 100 MG (100 MG, 1 IN 1 D), ORAL
     Route: 048
     Dates: start: 20051202
  3. BEXTRA [Suspect]
     Indication: OSTEOARTHRITIS
     Dates: end: 20051101
  4. BEXTRA [Suspect]
     Indication: RHEUMATOID ARTHRITIS
     Dates: end: 20051101
  5. ISOPTIN SR [Concomitant]
  6. THYROID TAB [Concomitant]
  7. MONTELUKAST SODIUM (MONTELUKAST SODIUM) [Concomitant]
  8. COMBIVENT [Concomitant]
  9. DYAZIDE [Concomitant]
  10. MAXZIDE [Concomitant]
  11. ALLERGY MEDICATION (ALLERGY MEDICATION) [Concomitant]
  12. PREMARIN [Concomitant]
  13. CARAFATE [Concomitant]
  14. PEPCID [Concomitant]
  15. MUCINEX (GUAIFENESIN) [Concomitant]
  16. VITAMIN B12 [Concomitant]
  17. MULTIVITAMIN [Concomitant]
  18. IRON (IRON) [Concomitant]
  19. ZYLOPRIM [Concomitant]
  20. ASPIRIN [Concomitant]
  21. LIPITOR [Concomitant]

REACTIONS (14)
  - ABDOMINAL PAIN [None]
  - ABDOMINOPLASTY [None]
  - ASTHMA [None]
  - BLOOD PRESSURE INCREASED [None]
  - CONDITION AGGRAVATED [None]
  - ERYTHEMA [None]
  - FEELING HOT [None]
  - FLUSHING [None]
  - GASTROOESOPHAGEAL REFLUX DISEASE [None]
  - HEADACHE [None]
  - HEART RATE INCREASED [None]
  - PALPITATIONS [None]
  - SURGERY [None]
  - TREATMENT NONCOMPLIANCE [None]
